FAERS Safety Report 20926020 (Version 2)
Quarter: 2022Q3

REPORT INFORMATION
  Report Type: Report from Study
  Country: IT (occurrence: IT)
  Receive Date: 20220607
  Receipt Date: 20220801
  Transmission Date: 20221027
  Serious: Yes (Death, Other)
  Sender: FDA-Public Use
  Company Number: IT-AMGEN-ITANI2022098276

PATIENT
  Age: 76 Year
  Sex: Male

DRUGS (2)
  1. SOTORASIB [Suspect]
     Active Substance: SOTORASIB
     Indication: Non-small cell lung cancer
     Dosage: 960 MILLIGRAM, QD (8 TABLETS A DAY) (FIRST CYCLE)
     Route: 065
     Dates: start: 20220509, end: 202205
  2. SOTORASIB [Suspect]
     Active Substance: SOTORASIB
     Dosage: 960 MILLIGRAM, QD (8 TABLETS A DAY) (SECOND CYCLE)
     Route: 065
     Dates: start: 20220531

REACTIONS (1)
  - Cardiac arrest [Fatal]

NARRATIVE: CASE EVENT DATE: 20220601
